FAERS Safety Report 25342632 (Version 1)
Quarter: 2025Q2

REPORT INFORMATION
  Report Type: Spontaneous
  Country: US (occurrence: US)
  Receive Date: 20250521
  Receipt Date: 20250521
  Transmission Date: 20250716
  Serious: Yes (Hospitalization, Other)
  Sender: GRANULES PHARMACEUTICALS INC
  Company Number: US-GRANULES-US-2025GRALIT00230

PATIENT
  Age: 36 Year
  Sex: Female

DRUGS (2)
  1. NAPROXEN [Suspect]
     Active Substance: NAPROXEN
     Indication: Headache
     Route: 065
  2. FAMOTIDINE [Concomitant]
     Active Substance: FAMOTIDINE
     Indication: Gastrooesophageal reflux disease
     Route: 065

REACTIONS (5)
  - Peritonitis [Recovered/Resolved]
  - Pelvic abscess [Recovered/Resolved]
  - Gastric ulcer perforation [Recovered/Resolved]
  - Intentional product misuse [Unknown]
  - Product use in unapproved indication [Unknown]
